FAERS Safety Report 11247444 (Version 5)
Quarter: 2016Q1

REPORT INFORMATION
  Report Type: Spontaneous
  Country: US (occurrence: US)
  Receive Date: 20150708
  Receipt Date: 20160118
  Transmission Date: 20160525
  Serious: Yes (Hospitalization)
  Sender: FDA-Public Use
  Company Number: US-BAYER-2015-373413

PATIENT
  Age: 36 Year
  Sex: Female
  Weight: 63.95 kg

DRUGS (2)
  1. MIRENA [Suspect]
     Active Substance: LEVONORGESTREL
     Indication: CONTRACEPTION
     Dosage: 20 MCG/24HR, CONT
     Route: 015
     Dates: start: 20140411, end: 20150415
  2. IBUPROFEN. [Concomitant]
     Active Substance: IBUPROFEN
     Dosage: UNK
     Dates: start: 200904

REACTIONS (10)
  - Uterine perforation [None]
  - Anxiety [None]
  - Insomnia [None]
  - Anhedonia [None]
  - Depressed mood [None]
  - Emotional distress [None]
  - Depression [None]
  - Pain [None]
  - Device issue [None]
  - Injury [None]

NARRATIVE: CASE EVENT DATE: 201411
